FAERS Safety Report 4647548-2 (Version None)
Quarter: 2005Q2

REPORT INFORMATION
  Report Type: 
  Country: None (occurrence: None)
  Receive Date: 20050428
  Receipt Date: 20050421
  Transmission Date: 20051028
  Serious: Yes (Other)
  Sender: FDA-Public Use
  Company Number: IT-ROCHE-402965

PATIENT
  Age: 45 Year
  Sex: Male

DRUGS (3)
  1. ALL-TRANS-RETINOIC ACID [Suspect]
     Indication: ACUTE PROMYELOCYTIC LEUKAEMIA
     Route: 048
  2. ALL-TRANS-RETINOIC ACID [Suspect]
     Route: 048
  3. IDARUBICIN HCL [Concomitant]
     Indication: ACUTE PROMYELOCYTIC LEUKAEMIA
     Route: 042

REACTIONS (2)
  - MYOCARDITIS [None]
  - MYOSITIS [None]
